FAERS Safety Report 14018498 (Version 1)
Quarter: 2017Q3

REPORT INFORMATION
  Report Type: Spontaneous
  Country: US (occurrence: US)
  Receive Date: 20170928
  Receipt Date: 20170928
  Transmission Date: 20171128
  Serious: Yes (Other)
  Sender: FDA-Public Use
  Company Number: None

PATIENT
  Age: 62 Year
  Sex: Female
  Weight: 76.5 kg

DRUGS (32)
  1. PREDNISONE. [Suspect]
     Active Substance: PREDNISONE
     Indication: HYPOTHALAMO-PITUITARY DISORDER
  2. LEXAPRO [Concomitant]
     Active Substance: ESCITALOPRAM OXALATE
  3. BELSOMA [Concomitant]
  4. ASTILLIN [Concomitant]
  5. MUSINEX DM [Concomitant]
     Active Substance: DEXTROMETHORPHAN HYDROBROMIDE\GUAIFENESIN
  6. TRAMADOL. [Concomitant]
     Active Substance: TRAMADOL
  7. DEXILANT [Concomitant]
     Active Substance: DEXLANSOPRAZOLE
  8. SINGULAIR [Concomitant]
     Active Substance: MONTELUKAST SODIUM
  9. XOPENEX [Concomitant]
     Active Substance: LEVALBUTEROL HYDROCHLORIDE
  10. ALLEGRA [Concomitant]
     Active Substance: FEXOFENADINE HYDROCHLORIDE
  11. PREDNISONE. [Suspect]
     Active Substance: PREDNISONE
     Indication: SECONDARY ADRENOCORTICAL INSUFFICIENCY
  12. PROLIA [Concomitant]
     Active Substance: DENOSUMAB
  13. VITAMIN B COMPLEX [Concomitant]
     Active Substance: CYANOCOBALAMIN\DEXPANTHENOL\NIACINAMIDE\PYRIDOXINE HYDROCHLORIDE\RIBOFLAVIN 5^-PHOSPHATE SODIUM\THIAMINE HYDROCHLORIDE\VITAMIN B COMPLEX
  14. SYNTHROID [Concomitant]
     Active Substance: LEVOTHYROXINE SODIUM
  15. INDAPAMIDE. [Concomitant]
     Active Substance: INDAPAMIDE
  16. VASCEPTA [Concomitant]
  17. CLONOPIN [Concomitant]
     Active Substance: CLONAZEPAM
  18. PROAIR HFA [Concomitant]
     Active Substance: ALBUTEROL SULFATE
  19. PANATOL [Concomitant]
  20. PRILOSEC [Concomitant]
     Active Substance: OMEPRAZOLE MAGNESIUM
  21. ALIGN [Concomitant]
     Active Substance: BIFIDOBACTERIUM LONGUM SUBSP. INFANTIS
  22. LIPITOR [Concomitant]
     Active Substance: ATORVASTATIN CALCIUM
  23. K-DUR [Concomitant]
     Active Substance: POTASSIUM CHLORIDE
  24. GAS-X [Concomitant]
     Active Substance: DIMETHICONE
  25. SPIRIVA [Concomitant]
     Active Substance: TIOTROPIUM BROMIDE MONOHYDRATE
  26. THEO-DUR [Concomitant]
     Active Substance: THEOPHYLLINE ANHYDROUS
  27. C PAP MACHINE [Concomitant]
  28. VITAMIN D2 [Concomitant]
     Active Substance: ERGOCALCIFEROL
  29. SYMBICORT [Concomitant]
     Active Substance: BUDESONIDE\FORMOTEROL FUMARATE DIHYDRATE
  30. MAGNESIUM [Concomitant]
     Active Substance: MAGNESIUM
  31. DUCALAX [Concomitant]
  32. IBGARD [Concomitant]

REACTIONS (3)
  - Malaise [None]
  - Drug effect variable [None]
  - Product substitution issue [None]

NARRATIVE: CASE EVENT DATE: 20080901
